FAERS Safety Report 6232865-5 (Version None)
Quarter: 2009Q2

REPORT INFORMATION
  Report Type: 
  Country: None (occurrence: None)
  Receive Date: 20090617
  Receipt Date: 20090217
  Transmission Date: 20091009
  Serious: No
  Sender: FDA-Public Use
  Company Number: US-ASTRAZENECA-2009UW03570

PATIENT
  Age: 72 Year
  Sex: Female
  Weight: 56.2 kg

DRUGS (4)
  1. FASLODEX [Suspect]
     Indication: BREAST CANCER RECURRENT
     Dosage: UNKNOWN
     Route: 030
     Dates: start: 20090205
  2. AVAPRO [Concomitant]
     Indication: HYPERTENSION
  3. ALENDRONATE SODIUM [Concomitant]
     Indication: OSTEOPOROSIS
  4. LIPITOR [Concomitant]
     Indication: BLOOD CHOLESTEROL INCREASED

REACTIONS (2)
  - BLOOD GLUCOSE INCREASED [None]
  - INJECTION SITE DISCOMFORT [None]
